FAERS Safety Report 9402942 (Version 2)
Quarter: 2013Q3

REPORT INFORMATION
  Report Type: Report from Study
  Country: CH (occurrence: CH)
  Receive Date: 20130716
  Receipt Date: 20130806
  Transmission Date: 20140515
  Serious: Yes (Life-Threatening, Hospitalization)
  Sender: FDA-Public Use
  Company Number: CH-TEVA-414862USA

PATIENT
  Age: 63 Year
  Sex: Male
  Weight: 96.7 kg

DRUGS (10)
  1. BENDAMUSTINE [Suspect]
     Route: 042
     Dates: start: 20121203, end: 20130507
  2. BENDAMUSTINE [Suspect]
     Route: 042
     Dates: end: 20130617
  3. REVLIMID [Suspect]
     Dosage: 25 MILLIGRAM DAILY; UID/QD
     Route: 048
     Dates: start: 20130604, end: 20130615
  4. REVLIMID [Suspect]
     Route: 048
     Dates: end: 20130617
  5. DEXAMETHASONE [Suspect]
     Route: 048
     Dates: start: 20130604, end: 20130611
  6. DEXAMETHASONE [Suspect]
     Route: 048
     Dates: end: 20130617
  7. BACTRIM FORTE [Concomitant]
     Indication: ANTIBIOTIC PROPHYLAXIS
     Route: 048
     Dates: start: 20121217
  8. CLEXANE [Concomitant]
     Indication: PROPHYLAXIS
     Dosage: 40 MILLIGRAM DAILY;
     Route: 058
     Dates: start: 20130618
  9. ELOCON [Concomitant]
     Indication: RASH
     Route: 061
     Dates: start: 20130304, end: 20130616
  10. ASPIRIN CODEINE [Concomitant]
     Indication: PLATELET AGGREGATION INHIBITION
     Dosage: 100 MILLIGRAM DAILY;
     Route: 048
     Dates: start: 20130617

REACTIONS (1)
  - Cerebral infarction [Recovered/Resolved with Sequelae]
